FAERS Safety Report 6099314-1 (Version None)
Quarter: 2009Q1

REPORT INFORMATION
  Report Type: 
  Country: None (occurrence: None)
  Receive Date: 20090303
  Receipt Date: 20090226
  Transmission Date: 20090719
  Serious: Yes (Death)
  Sender: FDA-Public Use
  Company Number: FR-JNJFOC-20081203793

PATIENT
  Sex: Female

DRUGS (9)
  1. DURAGESIC-100 [Suspect]
     Indication: PANCREATIC CARCINOMA
     Route: 062
  2. ACTIQ [Suspect]
     Indication: PAIN
  3. LEVOTHYROX [Concomitant]
  4. INNOHEP [Concomitant]
  5. OSTRAM VITAMINE D3 [Concomitant]
  6. SOLUPRED [Concomitant]
  7. CELIPROLOL [Concomitant]
  8. ACTISKENAN [Concomitant]
  9. LYRICA [Concomitant]

REACTIONS (4)
  - DRUG INEFFECTIVE [None]
  - DRUG INTOLERANCE [None]
  - INAPPROPRIATE SCHEDULE OF DRUG ADMINISTRATION [None]
  - PANCREATIC CARCINOMA [None]
